FAERS Safety Report 11898313 (Version 1)
Quarter: 2016Q1

REPORT INFORMATION
  Report Type: Spontaneous
  Country: HR (occurrence: HR)
  Receive Date: 20160108
  Receipt Date: 20160108
  Transmission Date: 20160526
  Serious: Yes (Hospitalization)
  Sender: FDA-Public Use
  Company Number: HR-TEVA-623038ACC

PATIENT
  Age: 79 Year
  Sex: Female

DRUGS (12)
  1. OKSAZEPAM BELUPO [Concomitant]
     Indication: DEPRESSION
     Route: 048
  2. NORMABEL [Concomitant]
     Active Substance: DIAZEPAM
     Indication: VASCULAR DEMENTIA
     Dosage: 5 MILLIGRAM DAILY;
     Route: 048
  3. PRAZINE [Concomitant]
     Active Substance: PROMAZINE HYDROCHLORIDE
     Indication: VASCULAR DEMENTIA
     Dosage: 50 MILLIGRAM DAILY;
     Route: 048
  4. CONTROLOC [Concomitant]
     Active Substance: PANTOPRAZOLE SODIUM
     Indication: GASTRITIS PROPHYLAXIS
     Dosage: 20 MILLIGRAM DAILY;
     Route: 048
  5. ELICEA [Concomitant]
     Active Substance: ESCITALOPRAM OXALATE
     Indication: DEPRESSION
     Route: 048
  6. ALOPURINOL [Concomitant]
     Active Substance: ALLOPURINOL
     Indication: HYPERURICAEMIA
     Route: 048
  7. EDEMID [Concomitant]
     Indication: HYPERTENSION
     Route: 048
  8. CIPROMED [Suspect]
     Active Substance: CIPROFLOXACIN
     Indication: URINARY TRACT INFECTION
     Route: 042
     Dates: start: 201511
  9. GLICLADA [Concomitant]
     Active Substance: GLICLAZIDE
     Indication: TYPE 2 DIABETES MELLITUS
     Dosage: 120 MILLIGRAM DAILY;
     Route: 048
  10. MARTEFARIN [Interacting]
     Active Substance: WARFARIN
     Indication: ATRIAL FIBRILLATION
     Route: 048
     Dates: start: 2014
  11. NINUR [Interacting]
     Active Substance: NITROFURANTOIN
     Indication: URINARY TRACT INFECTION
     Route: 048
     Dates: start: 201511
  12. CEFUROXIME. [Interacting]
     Active Substance: CEFUROXIME
     Indication: URINARY TRACT INFECTION
     Route: 042
     Dates: start: 201511

REACTIONS (10)
  - Drug interaction [Recovered/Resolved]
  - Overdose [None]
  - Microcytic anaemia [None]
  - Urinary tract infection [None]
  - Nephrolithiasis [None]
  - International normalised ratio increased [Recovered/Resolved]
  - Pyelonephritis [None]
  - Proteus test positive [None]
  - Renal cyst [None]
  - Escherichia test positive [None]

NARRATIVE: CASE EVENT DATE: 20151113
